FAERS Safety Report 5767832-9 (Version None)
Quarter: 2008Q2

REPORT INFORMATION
  Report Type: 
  Country: None (occurrence: None)
  Receive Date: 20080612
  Receipt Date: 20080604
  Transmission Date: 20081010
  Serious: Yes (Other)
  Sender: FDA-Public Use
  Company Number: PHHY2008AT09788

PATIENT
  Age: 59 Year
  Sex: Female

DRUGS (5)
  1. TRILEPTAL [Suspect]
     Dosage: 900 MG, UNK
     Dates: start: 20080301, end: 20080307
  2. NOZINAN [Concomitant]
     Dosage: 25 MG, UNK
     Dates: start: 20080308, end: 20080309
  3. NEUROBION FORTE [Concomitant]
     Dosage: 2 DF, UNK
     Dates: start: 20080301, end: 20080307
  4. PRAXITEN [Concomitant]
     Dosage: 60 MG, UNK
     Dates: start: 20080320
  5. PRAXITEN [Concomitant]
     Dosage: 15 MG, UNK
     Dates: start: 20080303

REACTIONS (2)
  - MUSCLE TWITCHING [None]
  - MYOCLONUS [None]
